FAERS Safety Report 7568634 (Version 3)
Quarter: 2013Q3

REPORT INFORMATION
  Report Type: Spontaneous
  Country: FR (occurrence: FR)
  Receive Date: 20100831
  Receipt Date: 20130814
  Transmission Date: 20140515
  Serious: Yes (Hospitalization, Other)
  Sender: FDA-Public Use
  Company Number: PHHY2010FR55134

PATIENT
  Age: 73 Year
  Sex: Female

DRUGS (12)
  1. COTAREG [Suspect]
     Dosage: 1 DF, QD
     Route: 048
     Dates: start: 20100428, end: 20100807
  2. PREVISCAN [Suspect]
     Dosage: 20 MG, UNK
     Dates: start: 20100519, end: 20100807
  3. SEROPLEX [Suspect]
     Dosage: UNK UKN, UNK
     Dates: start: 20100417, end: 20100807
  4. IMOVANE [Suspect]
     Dosage: 1 DF, QD
     Dates: start: 20100503, end: 20100809
  5. PARIET [Concomitant]
     Dosage: UNK UKN, UNK
     Dates: end: 20100807
  6. MOTILIUM [Concomitant]
     Dosage: UNK UKN, UNK
     Dates: end: 20100807
  7. GAVISCON [Concomitant]
     Dosage: UNK UKN, UNK
     Dates: end: 20100807
  8. TEMERIT [Concomitant]
     Dosage: 5 MG, UNK
     Dates: start: 20100630
  9. DITROPAN [Concomitant]
     Dosage: UNK UKN, UNK
     Dates: start: 20100708
  10. DEXTROPROPOXYPHENE HCL W/PARACETAMOL [Concomitant]
     Dosage: UNK UKN, UNK
     Dates: start: 201006
  11. TAHOR [Concomitant]
     Dosage: UNK UKN, UNK
     Dates: start: 201004
  12. AMLOR [Concomitant]
     Dosage: UNK UKN, UNK
     Dates: start: 201004

REACTIONS (12)
  - Drug reaction with eosinophilia and systemic symptoms [Recovered/Resolved]
  - Rash [Recovering/Resolving]
  - Rash erythematous [Recovering/Resolving]
  - Purpura [Recovering/Resolving]
  - Alanine aminotransferase increased [Recovering/Resolving]
  - Aspartate aminotransferase increased [Recovering/Resolving]
  - Blood bilirubin increased [Recovering/Resolving]
  - Blood alkaline phosphatase increased [Recovering/Resolving]
  - Eosinophil count increased [Recovering/Resolving]
  - Renal failure acute [Recovering/Resolving]
  - Blood creatinine increased [Recovering/Resolving]
  - Vitamin D decreased [Unknown]
